FAERS Safety Report 21575324 (Version 1)
Quarter: 2022Q4

REPORT INFORMATION
  Report Type: Report from Study
  Country: US (occurrence: US)
  Receive Date: 20221110
  Receipt Date: 20221110
  Transmission Date: 20230112
  Serious: No
  Sender: FDA-Public Use
  Company Number: US-ABBVIE-4139373

PATIENT
  Sex: Female

DRUGS (5)
  1. HUMIRA [Suspect]
     Active Substance: ADALIMUMAB
     Indication: Rheumatoid arthritis
     Route: 058
  2. Pfizer/BioNTech [Concomitant]
     Indication: COVID-19 immunisation
     Dosage: ONE IN ONCE ?1ST DOSE
     Route: 030
     Dates: start: 20210316, end: 20210316
  3. Pfizer/BioNTech [Concomitant]
     Indication: COVID-19 immunisation
     Dosage: ONE IN ONCE ?2ND DOSE
     Route: 030
     Dates: start: 20210406, end: 20210406
  4. Pfizer/BioNTech [Concomitant]
     Indication: COVID-19 immunisation
     Dosage: ONE IN ONCE ?1ST BOOSTER DOSE
     Route: 030
     Dates: start: 20220111, end: 20220111
  5. Pfizer/BioNTech [Concomitant]
     Indication: COVID-19 immunisation
     Dosage: ONE IN ONCE ?2ND BOOSTER DOSE
     Route: 030
     Dates: start: 20220531, end: 20220531

REACTIONS (3)
  - COVID-19 [Not Recovered/Not Resolved]
  - Dermatitis allergic [Recovered/Resolved]
  - Arthritis [Unknown]

NARRATIVE: CASE EVENT DATE: 20220101
